FAERS Safety Report 6849530-3 (Version None)
Quarter: 2010Q3

REPORT INFORMATION
  Report Type: 
  Country: None (occurrence: None)
  Receive Date: 20100716
  Receipt Date: 20090716
  Transmission Date: 20110219
  Serious: No
  Sender: FDA-Public Use
  Company Number: US-PFIZER INC-2007082940

PATIENT
  Sex: Female
  Weight: 81.8 kg

DRUGS (5)
  1. CHANTIX [Suspect]
     Indication: SMOKING CESSATION THERAPY
     Dosage: 0.5 MG, 1X/DAY
     Route: 048
     Dates: start: 20070926
  2. LEVOTHYROXINE [Concomitant]
     Dosage: 150 MG, 1X/DAY
  3. NEXIUM [Concomitant]
     Dosage: 40 MG, 1X/DAY
  4. CLONAZEPAM [Concomitant]
     Dosage: 5 MG, 1X/DAY
  5. CYMBALTA [Concomitant]
     Dosage: 60 MG, 1X/DAY

REACTIONS (5)
  - EMOTIONAL DISORDER [None]
  - NAUSEA [None]
  - NERVOUSNESS [None]
  - PANIC ATTACK [None]
  - SURGERY [None]
